FAERS Safety Report 14794262 (Version 1)
Quarter: 2018Q2

REPORT INFORMATION
  Report Type: Report from Study
  Country: CA (occurrence: CA)
  Receive Date: 20180423
  Receipt Date: 20180423
  Transmission Date: 20180711
  Serious: Yes (Hospitalization)
  Sender: FDA-Public Use
  Company Number: CA-HLSUS-2017-CA-001106

PATIENT
  Age: 65 Year
  Sex: Male

DRUGS (7)
  1. CITALOPRAM [Concomitant]
     Active Substance: CITALOPRAM HYDROBROMIDE
     Dosage: 10MG
  2. CLOZARIL [Suspect]
     Active Substance: CLOZAPINE
     Dosage: 300MG TID
     Dates: start: 19950511
  3. LANSOPRAZOLE. [Concomitant]
     Active Substance: LANSOPRAZOLE
  4. POLYETHYLENE GLYCOL [Concomitant]
     Active Substance: POLYETHYLENE GLYCOLS
  5. QUETIAPINE. [Concomitant]
     Active Substance: QUETIAPINE
  6. HYROCORTISONE [Concomitant]
  7. ZOPICLONE [Concomitant]
     Active Substance: ZOPICLONE

REACTIONS (6)
  - Anaemia [Unknown]
  - Pneumonia [Unknown]
  - Respiratory distress [Unknown]
  - Lymphopenia [Recovering/Resolving]
  - Sepsis [Unknown]
  - Chronic obstructive pulmonary disease [Unknown]

NARRATIVE: CASE EVENT DATE: 20170413
